FAERS Safety Report 6893802-3 (Version None)
Quarter: 2010Q3

REPORT INFORMATION
  Report Type: 
  Country: None (occurrence: None)
  Receive Date: 20100802
  Receipt Date: 20100723
  Transmission Date: 20110219
  Serious: Yes (Hospitalization)
  Sender: FDA-Public Use
  Company Number: 2005BI021567

PATIENT
  Age: 48 Year
  Sex: Female
  Weight: 66 kg

DRUGS (3)
  1. AVONEX [Suspect]
     Indication: MULTIPLE SCLEROSIS
     Route: 030
     Dates: start: 19991227, end: 20030927
  2. AVONEX [Suspect]
     Route: 030
     Dates: start: 20030930
  3. EFFEXOR [Concomitant]
     Indication: DEPRESSION
     Dates: start: 19990101

REACTIONS (13)
  - BLOOD CHOLESTEROL INCREASED [None]
  - CARDIAC DISORDER [None]
  - GASTRIC DISORDER [None]
  - HEADACHE [None]
  - INTRACRANIAL HYPOTENSION [None]
  - MULTIPLE SCLEROSIS [None]
  - MUSCLE SPASTICITY [None]
  - NAUSEA [None]
  - NEUROLOGICAL COMPLICATION ASSOCIATED WITH DEVICE [None]
  - PROCEDURAL COMPLICATION [None]
  - SLEEP DISORDER [None]
  - TEMPERATURE INTOLERANCE [None]
  - VOMITING [None]
